FAERS Safety Report 5381176-9 (Version None)
Quarter: 2007Q3

REPORT INFORMATION
  Report Type: 
  Country: None (occurrence: None)
  Receive Date: 20070706
  Receipt Date: 20070625
  Transmission Date: 20080115
  Serious: Yes (Other)
  Sender: FDA-Public Use
  Company Number: US-PFIZER INC-2007052830

PATIENT
  Sex: Female

DRUGS (1)
  1. CHANTIX [Suspect]

REACTIONS (6)
  - CANDIDIASIS [None]
  - DIARRHOEA [None]
  - HALLUCINATION [None]
  - PARANOIA [None]
  - VOMITING [None]
  - WEIGHT DECREASED [None]
